FAERS Safety Report 6417786-7 (Version None)
Quarter: 2009Q4

REPORT INFORMATION
  Report Type: 
  Country: None (occurrence: None)
  Receive Date: 20091028
  Receipt Date: 20091019
  Transmission Date: 20100525
  Serious: Yes (Other)
  Sender: FDA-Public Use
  Company Number: JP-ASTRAZENECA-2009SE21789

PATIENT
  Age: 78 Year
  Sex: Female

DRUGS (4)
  1. BLOPRESS [Suspect]
     Indication: HYPERTENSION
     Route: 048
     Dates: start: 20060203, end: 20091016
  2. CONIEL [Suspect]
     Route: 048
  3. CONIEL [Suspect]
     Route: 048
  4. CARDENALIN [Concomitant]
     Route: 048

REACTIONS (1)
  - PANCYTOPENIA [None]
